FAERS Safety Report 25269196 (Version 1)
Quarter: 2025Q2

REPORT INFORMATION
  Report Type: Spontaneous
  Country: FR (occurrence: FR)
  Receive Date: 20250505
  Receipt Date: 20250505
  Transmission Date: 20250717
  Serious: Yes (Hospitalization)
  Sender: MERCK SHARP & DOHME LLC
  Company Number: None

PATIENT
  Age: 6 Year
  Sex: Female
  Weight: 21 kg

DRUGS (3)
  1. TEMOZOLOMIDE [Suspect]
     Active Substance: TEMOZOLOMIDE
     Indication: Malignant glioma
     Dosage: DOSE DESCRIPTION : 60 MILLIGRAM, QD?DAILY DOSE : 60 MILLIGRAM
     Route: 048
     Dates: start: 20220413, end: 20220719
  2. OPDIVO [Suspect]
     Active Substance: NIVOLUMAB
     Indication: Malignant glioma
     Dates: start: 20220413, end: 20220427
  3. TEMOZOLOMIDE [Suspect]
     Active Substance: TEMOZOLOMIDE
     Indication: Glioma
     Dosage: DOSE DESCRIPTION : 126 MILLGRAM,QD; STRENGTH: 40 MG/ML?DAILY DOSE : 126 MILLIGRAM
     Route: 048
     Dates: start: 20220719, end: 20220719

REACTIONS (8)
  - Pyrexia [Recovered/Resolved]
  - Kawasaki^s disease [Recovered/Resolved]
  - Pyrexia [Recovered/Resolved]
  - Rash maculo-papular [Recovered/Resolved]
  - Chills [Recovered/Resolved]
  - Immune system disorder [Recovered/Resolved]
  - Chest pain [Recovered/Resolved]
  - Headache [Recovered/Resolved]

NARRATIVE: CASE EVENT DATE: 20220416
